FAERS Safety Report 7018619-0 (Version None)
Quarter: 2010Q3

REPORT INFORMATION
  Report Type: 
  Country: None (occurrence: None)
  Receive Date: 20100928
  Receipt Date: 20100921
  Transmission Date: 20110219
  Serious: Yes (Hospitalization)
  Sender: FDA-Public Use
  Company Number: DE-ABBOTT-10P-062-0668962-00

PATIENT
  Sex: Male
  Weight: 106 kg

DRUGS (4)
  1. KLACID TABLETS [Suspect]
     Indication: BRONCHOPNEUMONIA
  2. HUMIRA [Suspect]
     Indication: PSORIASIS
     Route: 058
     Dates: end: 20091116
  3. HUMIRA [Suspect]
     Route: 058
     Dates: start: 20100111
  4. AMPICILLIN SODIUM [Suspect]
     Indication: BRONCHOPNEUMONIA

REACTIONS (3)
  - BRONCHOPNEUMONIA [None]
  - GENERAL PHYSICAL HEALTH DETERIORATION [None]
  - RASH [None]
